FAERS Safety Report 5733754-2 (Version None)
Quarter: 2008Q2

REPORT INFORMATION
  Report Type: 
  Country: None (occurrence: None)
  Receive Date: 20080509
  Receipt Date: 20080505
  Transmission Date: 20081010
  Serious: Yes (Hospitalization)
  Sender: FDA-Public Use
  Company Number: AU-WYE-G01491808

PATIENT
  Sex: Female

DRUGS (6)
  1. EFFEXOR XR [Suspect]
     Indication: DEPRESSION
     Route: 048
     Dates: start: 20060101
  2. EFFEXOR XR [Suspect]
     Indication: PAIN
     Route: 048
  3. EFFEXOR XR [Suspect]
     Dosage: ^MORE THAN 150MG^
     Route: 048
     Dates: start: 20071001, end: 20080101
  4. TRAMADOL HCL [Suspect]
     Dosage: UNKNOWN
     Dates: end: 20080201
  5. DOLASED [Concomitant]
  6. LYRICA [Concomitant]

REACTIONS (6)
  - AGGRESSION [None]
  - DRUG ABUSE [None]
  - EUPHORIC MOOD [None]
  - INTENTIONAL SELF-INJURY [None]
  - SEROTONIN SYNDROME [None]
  - SOMNOLENCE [None]
